FAERS Safety Report 6962963-X (Version None)
Quarter: 2010Q3

REPORT INFORMATION
  Report Type: 
  Country: None (occurrence: None)
  Receive Date: 20100831
  Receipt Date: 20100818
  Transmission Date: 20110219
  Serious: Yes (Other)
  Sender: FDA-Public Use
  Company Number: ALA_00631_2010

PATIENT
  Sex: Female

DRUGS (4)
  1. LEVBID 0.375 MG (NOT SPECIFIED) [Suspect]
     Indication: GASTROINTESTINAL PAIN
     Dosage: (DF)
  2. CELEBREX [Concomitant]
  3. KAPIDEX [Concomitant]
  4. ZANTAC [Concomitant]

REACTIONS (1)
  - BLINDNESS [None]
